FAERS Safety Report 7423102-4 (Version None)
Quarter: 2011Q2

REPORT INFORMATION
  Report Type: 
  Country: None (occurrence: None)
  Receive Date: 20110411
  Receipt Date: 20110328
  Transmission Date: 20111010
  Serious: Yes (Other)
  Sender: FDA-Public Use
  Company Number: 20110004USST

PATIENT
  Sex: Male

DRUGS (3)
  1. CARNITENE (L-CARNITINE) [Suspect]
     Dosage: 1665 MG PO BID
     Route: 048
  2. VALPROATE SODIUM [Concomitant]
  3. KEPPRA [Concomitant]

REACTIONS (1)
  - EPILEPSY [None]
